FAERS Safety Report 8255739 (Version 4)
Quarter: 2015Q1

REPORT INFORMATION
  Report Type: Report from Study
  Country: GB (occurrence: GB)
  Receive Date: 20111118
  Receipt Date: 20150318
  Transmission Date: 20150721
  Serious: Yes (Hospitalization)
  Sender: FDA-Public Use
  Company Number: GB-ROCHE-1003819

PATIENT
  Age: 62 Year
  Sex: Female
  Weight: 48.4 kg

DRUGS (7)
  1. PRED FORTE EYE DROPS [Concomitant]
     Route: 065
     Dates: start: 20111003
  2. BENDROFLUMETHIAZIDE [Concomitant]
     Active Substance: BENDROFLUMETHIAZIDE
     Route: 065
     Dates: start: 1998
  3. LOSARTAN [Concomitant]
     Active Substance: LOSARTAN
     Route: 065
     Dates: start: 1998
  4. VEMURAFENIB [Suspect]
     Active Substance: VEMURAFENIB
     Indication: MALIGNANT MELANOMA
     Dosage: LAST DOSE PRIOR SAE WAS ON 02/OCT/2011
     Route: 048
     Dates: start: 20110927, end: 20111010
  5. DICLOFENAC [Concomitant]
     Active Substance: DICLOFENAC
     Route: 065
     Dates: start: 20111003
  6. CLIMAVAL [Concomitant]
     Active Substance: ESTRADIOL VALERATE
     Route: 065
     Dates: start: 1998
  7. VEMURAFENIB [Suspect]
     Active Substance: VEMURAFENIB
     Dosage: AT REDUCED DOSE
     Route: 048
     Dates: start: 20111024

REACTIONS (1)
  - Muscular weakness [Recovered/Resolved]

NARRATIVE: CASE EVENT DATE: 20111010
